FAERS Safety Report 21366409 (Version 3)
Quarter: 2022Q3

REPORT INFORMATION
  Report Type: Report from Study
  Country: TR (occurrence: TR)
  Receive Date: 20220922
  Receipt Date: 20220929
  Transmission Date: 20221026
  Serious: Yes (Death, Life-Threatening, Hospitalization)
  Sender: FDA-Public Use
  Company Number: TR-AMGEN-TURCT2022162811

PATIENT
  Age: 57 Year
  Sex: Female
  Weight: 58.4 kg

DRUGS (3)
  1. ROMIPLOSTIM [Suspect]
     Active Substance: ROMIPLOSTIM
     Indication: Thrombocytopenia
     Dosage: UNK
     Route: 058
     Dates: start: 20220629
  2. FENTANYL [Concomitant]
     Active Substance: FENTANYL
     Dosage: 4.2 MILLIGRAM
     Route: 062
     Dates: start: 20220811
  3. OXOPANE [Concomitant]
     Dosage: 10 MILLIGRAM
     Route: 048
     Dates: start: 20220811

REACTIONS (1)
  - Colorectal cancer [Fatal]

NARRATIVE: CASE EVENT DATE: 20220916
